FAERS Safety Report 21860697 (Version 1)
Quarter: 2023Q1

REPORT INFORMATION
  Report Type: Spontaneous
  Country: US (occurrence: US)
  Receive Date: 20230113
  Receipt Date: 20230113
  Transmission Date: 20230418
  Serious: Yes (Life-Threatening, Hospitalization, Other)
  Sender: FDA-Public Use
  Company Number: US-PFIZER INC-PV202300004737

PATIENT
  Age: 18 Month
  Sex: Male
  Weight: 13.6 kg

DRUGS (2)
  1. MORPHINE SULFATE [Suspect]
     Active Substance: MORPHINE SULFATE
     Indication: General anaesthesia
     Dosage: 1 G
  2. MORPHINE SULFATE [Suspect]
     Active Substance: MORPHINE SULFATE
     Dosage: 0.5 MG
     Route: 042

REACTIONS (3)
  - Off label use [Unknown]
  - Hypopnoea [Recovering/Resolving]
  - Apnoea [Recovering/Resolving]
